FAERS Safety Report 7570336-4 (Version None)
Quarter: 2011Q2

REPORT INFORMATION
  Report Type: 
  Country: None (occurrence: None)
  Receive Date: 20110624
  Receipt Date: 20110620
  Transmission Date: 20111010
  Serious: Yes (Death, Other)
  Sender: FDA-Public Use
  Company Number: US-PURDUE-USA-2011-0070870

PATIENT
  Age: 55 Year
  Sex: Male

DRUGS (2)
  1. OXYCONTIN [Suspect]
     Indication: PRODUCT USED FOR UNKNOWN INDICATION
  2. DURAMORPH PF [Suspect]
     Indication: PRODUCT USED FOR UNKNOWN INDICATION
     Dosage: 1 MG, UNK

REACTIONS (6)
  - DISCOMFORT [None]
  - RESPIRATORY ARREST [None]
  - HEADACHE [None]
  - DEATH [None]
  - RESPIRATORY DEPRESSION [None]
  - PAIN [None]
